FAERS Safety Report 19209561 (Version 1)
Quarter: 2021Q2

REPORT INFORMATION
  Report Type: Spontaneous
  Country: DE (occurrence: DE)
  Receive Date: 20210504
  Receipt Date: 20210504
  Transmission Date: 20210717
  Serious: Yes (Other)
  Sender: FDA-Public Use
  Company Number: DE-SUN PHARMACEUTICAL INDUSTRIES LTD-2021R1-294241

PATIENT
  Age: 76 Year
  Sex: Female

DRUGS (2)
  1. NICOTINAMIDE [Concomitant]
     Active Substance: NIACINAMIDE
     Indication: PEMPHIGUS
     Dosage: 200 MILLIGRAM, TID
     Route: 065
  2. TETRACYCLINE [Suspect]
     Active Substance: TETRACYCLINE
     Indication: PEMPHIGUS
     Dosage: 1 GRAM, BID
     Route: 065

REACTIONS (2)
  - Abdominal discomfort [Unknown]
  - Transaminases increased [Unknown]
